FAERS Safety Report 26118016 (Version 1)
Quarter: 2025Q4

REPORT INFORMATION
  Report Type: Report from Study
  Country: US (occurrence: None)
  Receive Date: 20251203
  Receipt Date: 20251203
  Transmission Date: 20260117
  Serious: No
  Sender: APOTEX
  Company Number: US-APOTEX-2025AP033352

PATIENT

DRUGS (1)
  1. IMIQUIMOD [Suspect]
     Active Substance: IMIQUIMOD
     Indication: Malignant melanoma
     Dosage: 5 PERCENT, FREQUENCY OF FIVE APPLICATIONS PER WEEK

REACTIONS (2)
  - Therapy cessation [Unknown]
  - Influenza like illness [Recovered/Resolved]
